FAERS Safety Report 15358439 (Version 1)
Quarter: 2018Q3

REPORT INFORMATION
  Report Type: Spontaneous
  Country: US (occurrence: US)
  Receive Date: 20180830
  Receipt Date: 20180830
  Transmission Date: 20181010
  Serious: Yes (Other)
  Sender: FDA-Public Use
  Company Number: None

PATIENT
  Age: 74 Year
  Sex: Male

DRUGS (11)
  1. ESBRIET [Suspect]
     Active Substance: PIRFENIDONE
     Indication: IDIOPATHIC PULMONARY FIBROSIS
     Route: 048
     Dates: start: 20180615
  2. FUROSEMIDE. [Concomitant]
     Active Substance: FUROSEMIDE
  3. ALLOPURINOL. [Concomitant]
     Active Substance: ALLOPURINOL
  4. METRONIDAZOL [Concomitant]
     Active Substance: METRONIDAZOLE
  5. ELIQUIS [Concomitant]
     Active Substance: APIXABAN
  6. FINASTERIDE. [Concomitant]
     Active Substance: FINASTERIDE
  7. VESICARE [Concomitant]
     Active Substance: SOLIFENACIN SUCCINATE
  8. CIPROFLOXACIN. [Concomitant]
     Active Substance: CIPROFLOXACIN
  9. FLUROMETHOL [Concomitant]
  10. OMEPRAZOLE. [Concomitant]
     Active Substance: OMEPRAZOLE
  11. METOPOROL [Concomitant]

REACTIONS (3)
  - Stent removal [None]
  - Gallbladder operation [None]
  - Stent placement [None]

NARRATIVE: CASE EVENT DATE: 20180731
